FAERS Safety Report 5751228-X (Version None)
Quarter: 2008Q2

REPORT INFORMATION
  Report Type: 
  Country: None (occurrence: None)
  Receive Date: 20080528
  Receipt Date: 20080505
  Transmission Date: 20081010
  Serious: No
  Sender: FDA-Public Use
  Company Number: US-BOEHRINGER INGELHEIM GMBH, GERMANY-2008-BP-07028BP

PATIENT
  Age: 83 Year
  Sex: Male

DRUGS (6)
  1. SPIRIVA [Suspect]
     Indication: CHRONIC OBSTRUCTIVE PULMONARY DISEASE
     Dates: start: 20080425, end: 20080501
  2. SPIRIVA [Suspect]
     Indication: EMPHYSEMA
  3. SEREVENT [Concomitant]
  4. FLOMAX [Concomitant]
  5. FLUCONAZOLE [Concomitant]
  6. FUROSEMIDE [Concomitant]

REACTIONS (1)
  - CONSTIPATION [None]
